FAERS Safety Report 23619601 (Version 4)
Quarter: 2024Q3

REPORT INFORMATION
  Report Type: Report from Study
  Country: US (occurrence: US)
  Receive Date: 20240312
  Receipt Date: 20240910
  Transmission Date: 20241016
  Serious: Yes (Other)
  Sender: MALLINCKRODT
  Company Number: US-MALLINCKRODT-MNK202401592

PATIENT
  Age: 70 Year
  Sex: Female

DRUGS (2)
  1. CORTICOTROPIN [Suspect]
     Active Substance: CORTICOTROPIN
     Indication: Conjunctivitis allergic
     Dosage: 80 UNITS
     Dates: start: 20240220, end: 2024
  2. CORTICOTROPIN [Suspect]
     Active Substance: CORTICOTROPIN
     Route: 058
     Dates: start: 202404

REACTIONS (3)
  - Type 2 diabetes mellitus [Not Recovered/Not Resolved]
  - Pain [Not Recovered/Not Resolved]
  - Seasonal allergy [Not Recovered/Not Resolved]

NARRATIVE: CASE EVENT DATE: 20240101
